FAERS Safety Report 4602907-9 (Version None)
Quarter: 2005Q1

REPORT INFORMATION
  Report Type: 
  Country: None (occurrence: None)
  Receive Date: 20050309
  Receipt Date: 20050301
  Transmission Date: 20050727
  Serious: Yes (Other)
  Sender: FDA-Public Use
  Company Number: 393984

PATIENT
  Age: 63 Year
  Sex: Female

DRUGS (1)
  1. DILATREND [Suspect]
     Route: 048

REACTIONS (5)
  - ANAEMIA [None]
  - HAEMOGLOBIN DECREASED [None]
  - NEUTROPHIL COUNT DECREASED [None]
  - ROULEAUX FORMATION [None]
  - WHITE BLOOD CELL COUNT DECREASED [None]
